FAERS Safety Report 11536792 (Version 5)
Quarter: 2015Q4

REPORT INFORMATION
  Report Type: Report from Study
  Country: CN (occurrence: CN)
  Receive Date: 20150922
  Receipt Date: 20151106
  Transmission Date: 20160304
  Serious: Yes (Other)
  Sender: FDA-Public Use
  Company Number: CN-EISAI MEDICAL RESEARCH-EC-2015-010470

PATIENT
  Age: 37 Year
  Sex: Female
  Weight: 62.8 kg

DRUGS (4)
  1. PERAMPANEL [Suspect]
     Active Substance: PERAMPANEL
     Route: 048
     Dates: start: 20130918, end: 20150826
  2. TOPIRAMATE. [Concomitant]
     Active Substance: TOPIRAMATE
  3. PERAMPANEL [Suspect]
     Active Substance: PERAMPANEL
     Dosage: CONVERSION PERIOD
     Route: 048
     Dates: start: 20130807, end: 20130917
  4. PERAMPANEL [Suspect]
     Active Substance: PERAMPANEL
     Indication: GENERALISED TONIC-CLONIC SEIZURE
     Dosage: PLACEBO
     Route: 048
     Dates: start: 20130409, end: 20130806

REACTIONS (1)
  - Mental disorder [Recovered/Resolved]

NARRATIVE: CASE EVENT DATE: 20150903
